FAERS Safety Report 5356296-5 (Version None)
Quarter: 2007Q2

REPORT INFORMATION
  Report Type: 
  Country: None (occurrence: None)
  Receive Date: 20070530
  Receipt Date: 20070116
  Transmission Date: 20071010
  Serious: Yes (Hospitalization, Other)
  Sender: FDA-Public Use
  Company Number: US200609003757

PATIENT
  Age: 57 Year
  Sex: Female
  Weight: 64.4 kg

DRUGS (1)
  1. ZYPREXA [Suspect]
     Indication: DEPRESSION
     Dosage: 5 MG
     Dates: start: 20030211, end: 20050101

REACTIONS (2)
  - PANCREATITIS [None]
  - PANIC ATTACK [None]
